FAERS Safety Report 23778560 (Version 4)
Quarter: 2024Q3

REPORT INFORMATION
  Report Type: Spontaneous
  Country: JP (occurrence: JP)
  Receive Date: 20240424
  Receipt Date: 20240822
  Transmission Date: 20241017
  Serious: Yes (Death, Life-Threatening, Other)
  Sender: ROCHE
  Company Number: JP-CHUGAI-2024012905

PATIENT
  Age: 74 Year
  Sex: Male
  Weight: 52.3 kg

DRUGS (12)
  1. HEMLIBRA [Suspect]
     Active Substance: EMICIZUMAB-KXWH
     Indication: Acquired haemophilia
     Dosage: 330 MILLIGRAM, SINGLE
     Route: 050
     Dates: start: 20240319, end: 20240319
  2. HEMLIBRA [Suspect]
     Active Substance: EMICIZUMAB-KXWH
     Dosage: 165 MILLIGRAM, SINGLE
     Route: 050
     Dates: start: 20240320, end: 20240320
  3. HEMLIBRA [Suspect]
     Active Substance: EMICIZUMAB-KXWH
     Dosage: 90 MILLIGRAM, ONCE/WEEK
     Route: 050
     Dates: start: 20240326, end: 20240507
  4. SOLU-MEDROL [Concomitant]
     Active Substance: METHYLPREDNISOLONE SODIUM SUCCINATE
     Dosage: UNK
     Route: 065
     Dates: start: 20240405, end: 20240407
  5. NICARDIPINE HYDROCHLORIDE [Concomitant]
     Active Substance: NICARDIPINE HYDROCHLORIDE
     Dosage: UNK
     Route: 065
     Dates: start: 20240411, end: 20240425
  6. OMEPRAZOLE [Concomitant]
     Active Substance: OMEPRAZOLE
     Dosage: UNK
     Route: 065
     Dates: start: 20240411, end: 20240422
  7. SOLU-CORTEF [Concomitant]
     Active Substance: HYDROCORTISONE SODIUM SUCCINATE
     Dosage: UNK
     Route: 065
     Dates: start: 20240411, end: 20240417
  8. MEROPENEM [Concomitant]
     Active Substance: MEROPENEM
     Dosage: UNK
     Route: 065
     Dates: start: 20240413, end: 20240424
  9. MICAFUNGIN SODIUM [Concomitant]
     Active Substance: MICAFUNGIN SODIUM
     Dosage: UNK
     Route: 065
     Dates: start: 20240414, end: 20240424
  10. PIPERACILLIN SODIUM\TAZOBACTAM SODIUM [Concomitant]
     Active Substance: PIPERACILLIN SODIUM\TAZOBACTAM SODIUM
     Dosage: UNK
     Route: 065
     Dates: start: 20240405, end: 20240413
  11. VIMPAT [Concomitant]
     Active Substance: LACOSAMIDE
     Dosage: UNK
     Route: 065
     Dates: start: 20240415, end: 20240422
  12. PREDNISOLONE SODIUM SUCCINATE [Concomitant]
     Active Substance: PREDNISOLONE SODIUM SUCCINATE
     Dosage: UNK
     Route: 065
     Dates: start: 20240502, end: 20240510

REACTIONS (11)
  - Subarachnoid haemorrhage [Recovering/Resolving]
  - Melaena [Recovered/Resolved]
  - Contusion [Recovered/Resolved]
  - Fall [Unknown]
  - Rectal ulcer [Unknown]
  - Mouth haemorrhage [Recovered/Resolved]
  - Pneumonia [Fatal]
  - Injury [Recovering/Resolving]
  - Haemoglobin decreased [Not Recovered/Not Resolved]
  - Activated partial thromboplastin time prolonged [Unknown]
  - Constipation [Unknown]

NARRATIVE: CASE EVENT DATE: 20240410
